FAERS Safety Report 9708913 (Version 1)
Quarter: 2013Q4

REPORT INFORMATION
  Report Type: Report from Study
  Country: US (occurrence: US)
  Receive Date: 20131125
  Receipt Date: 20131125
  Transmission Date: 20140711
  Serious: Yes (Death)
  Sender: FDA-Public Use
  Company Number: US-BAXTER-2013BAX046714

PATIENT
  Sex: 0

DRUGS (10)
  1. CYCLOPHOSPHAMIDE FOR INJECTION, USP [Suspect]
     Indication: PERIPHERAL T-CELL LYMPHOMA UNSPECIFIED
     Dosage: DAY 3
     Route: 042
  2. DENILEUKIN DIFTITOX [Suspect]
     Indication: PERIPHERAL T-CELL LYMPHOMA UNSPECIFIED
     Dosage: ON DAYS 1 AND 2
  3. DOXORUBICIN [Suspect]
     Indication: PERIPHERAL T-CELL LYMPHOMA UNSPECIFIED
     Dosage: ON DAY 3
     Route: 042
  4. VINCRISTINE [Suspect]
     Indication: PERIPHERAL T-CELL LYMPHOMA UNSPECIFIED
     Dosage: ON DAY 3
     Route: 042
  5. PREDNISONE [Suspect]
     Indication: PERIPHERAL T-CELL LYMPHOMA UNSPECIFIED
     Dosage: ON DAYS 3-7
     Route: 048
  6. GRANULOCYTE COLONY-STIMULATING FACTOR NOS [Suspect]
     Indication: NEUTROPENIA
     Dosage: ON DAY 4
  7. DEXAMETHASONE [Concomitant]
     Indication: PREMEDICATION
     Dosage: 4-8 MG IV OR ORALLY
  8. ACETAMINOPHEN [Concomitant]
     Indication: PREMEDICATION
     Route: 048
  9. DIPHENHYDRAMINE [Concomitant]
     Indication: PREMEDICATION
     Route: 042
  10. NORMAL SALINE [Concomitant]
     Indication: PRODUCT USED FOR UNKNOWN INDICATION
     Dosage: 250-500 MLS BEFORE AND AFTER EACH DD INFUSION

REACTIONS (1)
  - Death [Fatal]
